FAERS Safety Report 23799150 (Version 1)
Quarter: 2024Q2

REPORT INFORMATION
  Report Type: Spontaneous
  Country: US (occurrence: US)
  Receive Date: 20240430
  Receipt Date: 20240430
  Transmission Date: 20240716
  Serious: Yes (Other)
  Sender: FDA-Public Use
  Company Number: US-SANDOZ-SDZ2024US042114

PATIENT
  Age: 14 Year
  Sex: Female

DRUGS (3)
  1. IMMUNE GLOBULIN NOS [Suspect]
     Active Substance: IMMUNE GLOBULIN NOS
     Indication: Pemphigus
     Dosage: (15 G/D [0.4 MG/KG/D]) FOR 5 DAYS
     Route: 042
  2. MYCOPHENOLATE MOFETIL [Suspect]
     Active Substance: MYCOPHENOLATE MOFETIL
     Indication: Pemphigus
     Dosage: 500 MG, QD
     Route: 065
  3. PREDNISONE [Suspect]
     Active Substance: PREDNISONE
     Indication: Pemphigus
     Dosage: 60 MG
     Route: 048

REACTIONS (8)
  - Pemphigus [Recovered/Resolved]
  - Condition aggravated [Recovered/Resolved]
  - Sepsis [Unknown]
  - Cushingoid [Unknown]
  - Oedema [Unknown]
  - Hirsutism [Unknown]
  - Product use in unapproved indication [Unknown]
  - Therapeutic product effect incomplete [Unknown]
